FAERS Safety Report 7328599-6 (Version None)
Quarter: 2011Q1

REPORT INFORMATION
  Report Type: 
  Country: None (occurrence: None)
  Receive Date: 20110225
  Receipt Date: 20110225
  Transmission Date: 20110831
  Serious: Yes (Hospitalization)
  Sender: FDA-Public Use
  Company Number: None

PATIENT
  Sex: Male
  Weight: 141.5223 kg

DRUGS (3)
  1. OXALIPLATIN [Suspect]
     Dosage: 85MG EVERY 2 WEEKS IV
     Route: 042
     Dates: start: 20081121
  2. VANDETANIB [Suspect]
     Dosage: 200MG DAILY PO
     Route: 048
     Dates: start: 20081121, end: 20081219
  3. GEMCITABINE [Suspect]
     Dosage: 1000MG EVERY 2 WEEKS IV
     Route: 042
     Dates: start: 20081121

REACTIONS (3)
  - POSTERIOR REVERSIBLE ENCEPHALOPATHY SYNDROME [None]
  - HYPERTENSION [None]
  - TREATMENT NONCOMPLIANCE [None]
